FAERS Safety Report 26127005 (Version 1)
Quarter: 2025Q4

REPORT INFORMATION
  Report Type: Spontaneous
  Country: US (occurrence: US)
  Receive Date: 20251205
  Receipt Date: 20251205
  Transmission Date: 20260118
  Serious: No
  Sender: PRIMUS PHARMACEUTICALS
  Company Number: US-PRIMUS-2025-US-016006

PATIENT
  Age: 77 Year
  Sex: Female

DRUGS (12)
  1. IMPOYZ [Suspect]
     Active Substance: CLOBETASOL PROPIONATE
     Indication: Psoriasis
     Dosage: APPLY TOPICALLY FOR ITCH TWICE A DAY
     Route: 061
     Dates: start: 20250315, end: 20250331
  2. MIRABEGRON [Concomitant]
     Active Substance: MIRABEGRON
  3. LEFLUNOMIDE [Concomitant]
     Active Substance: LEFLUNOMIDE
  4. ELIQUIS [Concomitant]
     Active Substance: APIXABAN
  5. HYDROCORTISONE (TOPICAL) [Concomitant]
     Route: 061
  6. KETOCONAZOLE [Concomitant]
     Active Substance: KETOCONAZOLE
  7. TACROLIMUS [Concomitant]
     Active Substance: TACROLIMUS
  8. TRIAMCINOLONE [Concomitant]
     Active Substance: TRIAMCINOLONE
  9. MAGNESIUM GLYCINATE [Concomitant]
     Active Substance: MAGNESIUM GLYCINATE
  10. VITAMIN B12 [Concomitant]
     Active Substance: CYANOCOBALAMIN
  11. VITAMIN D3 [Concomitant]
     Active Substance: CHOLECALCIFEROL
  12. HYDROXYZINE HYDROCHLORIDE [Concomitant]
     Active Substance: HYDROXYZINE HYDROCHLORIDE

REACTIONS (3)
  - Drug ineffective [Recovered/Resolved]
  - Psoriasis [Unknown]
  - Burning sensation [Unknown]
